FAERS Safety Report 7398820-7 (Version None)
Quarter: 2011Q2

REPORT INFORMATION
  Report Type: 
  Country: None (occurrence: None)
  Receive Date: 20110404
  Receipt Date: 20110404
  Transmission Date: 20111010
  Serious: Yes (Hospitalization)
  Sender: FDA-Public Use
  Company Number: None

PATIENT
  Age: 66 Year
  Sex: Male
  Weight: 91 kg

DRUGS (2)
  1. WARFARIN SODIUM [Suspect]
     Indication: ATRIAL FIBRILLATION
     Dosage: 5 MG EVERY DAY PO
     Route: 048
     Dates: start: 20100810
  2. CLOPIDOGREL [Suspect]
     Indication: STENT PLACEMENT
     Dosage: 75 MG EVERY DAY PO
     Route: 048
     Dates: start: 20100716

REACTIONS (8)
  - GASTRIC HAEMORRHAGE [None]
  - ABDOMINAL DISTENSION [None]
  - COAGULOPATHY [None]
  - INTERNATIONAL NORMALISED RATIO ABNORMAL [None]
  - LACERATION [None]
  - MELAENA [None]
  - PAIN [None]
  - ANAEMIA [None]
